FAERS Safety Report 6863936-8 (Version None)
Quarter: 2010Q3

REPORT INFORMATION
  Report Type: 
  Country: None (occurrence: None)
  Receive Date: 20100721
  Receipt Date: 20080411
  Transmission Date: 20110219
  Serious: Yes (Other)
  Sender: FDA-Public Use
  Company Number: US-PFIZER INC-2008023304

PATIENT
  Sex: Female
  Weight: 50 kg

DRUGS (13)
  1. CHANTIX [Suspect]
     Indication: SMOKING CESSATION THERAPY
     Route: 048
     Dates: start: 20080201
  2. ALL OTHER THERAPEUTIC PRODUCTS [Concomitant]
  3. LEXAPRO [Concomitant]
  4. XANAX [Concomitant]
  5. ALL OTHER THERAPEUTIC PRODUCTS [Concomitant]
  6. ALL OTHER THERAPEUTIC PRODUCTS [Concomitant]
  7. FIORICET [Concomitant]
  8. DARVOCET [Concomitant]
  9. SEREVENT [Concomitant]
  10. SPIRIVA [Concomitant]
  11. ALBUTEROL [Concomitant]
  12. FLONASE [Concomitant]
  13. ALLEGRA [Concomitant]

REACTIONS (2)
  - NAUSEA [None]
  - OSTEOPOROSIS [None]
